FAERS Safety Report 4917416-7 (Version None)
Quarter: 2006Q1

REPORT INFORMATION
  Report Type: 
  Country: None (occurrence: None)
  Receive Date: 20060221
  Receipt Date: 20050418
  Transmission Date: 20060701
  Serious: Yes (Hospitalization, Disabling)
  Sender: FDA-Public Use
  Company Number: US-MERCK-0504USA03467

PATIENT
  Age: 66 Year
  Sex: Male
  Weight: 81 kg

DRUGS (9)
  1. VIOXX [Suspect]
     Indication: ARTHRITIS
     Route: 048
     Dates: start: 19990809
  2. VIOXX [Suspect]
     Route: 048
     Dates: start: 20011117
  3. VIOXX [Suspect]
     Route: 048
     Dates: start: 20011117, end: 20040101
  4. VIOXX [Suspect]
     Indication: BACK PAIN
     Route: 048
     Dates: start: 19990809
  5. VIOXX [Suspect]
     Route: 048
     Dates: start: 20011117
  6. VIOXX [Suspect]
     Route: 048
     Dates: start: 20011117, end: 20040101
  7. DYAZIDE [Concomitant]
     Route: 065
  8. HYZAAR [Concomitant]
     Route: 065
  9. LIPITOR [Concomitant]
     Route: 065

REACTIONS (51)
  - ACUTE SINUSITIS [None]
  - AORTIC ARTERIOSCLEROSIS [None]
  - AORTIC VALVE INCOMPETENCE [None]
  - ARTHRALGIA [None]
  - ARTHROPATHY [None]
  - BACK DISORDER [None]
  - BACK PAIN [None]
  - BLOOD HOMOCYSTEINE INCREASED [None]
  - BLOOD PRESSURE FLUCTUATION [None]
  - BLOOD PRESSURE INCREASED [None]
  - BURSITIS [None]
  - CARPAL TUNNEL SYNDROME [None]
  - CHEST PAIN [None]
  - CORONARY ARTERY OCCLUSION [None]
  - COUGH [None]
  - DIZZINESS [None]
  - DYSPNOEA EXERTIONAL [None]
  - EPIDIDYMAL CYST [None]
  - ERECTILE DYSFUNCTION [None]
  - FATIGUE [None]
  - FLANK PAIN [None]
  - GASTROOESOPHAGEAL REFLUX DISEASE [None]
  - GROIN PAIN [None]
  - HAEMATURIA [None]
  - HEADACHE [None]
  - HYPERLIPIDAEMIA [None]
  - HYPERURICAEMIA [None]
  - HYPOREFLEXIA [None]
  - HYPOTENSION [None]
  - INGUINAL HERNIA [None]
  - INTERVERTEBRAL DISC DEGENERATION [None]
  - INTERVERTEBRAL DISC PROTRUSION [None]
  - JOINT SPRAIN [None]
  - LIBIDO DECREASED [None]
  - MITRAL VALVE INCOMPETENCE [None]
  - MUSCULOSKELETAL CHEST PAIN [None]
  - MUSCULOSKELETAL DISCOMFORT [None]
  - NEPHROLITHIASIS [None]
  - NODULE [None]
  - NON-CARDIAC CHEST PAIN [None]
  - OBESITY [None]
  - OEDEMA PERIPHERAL [None]
  - PAIN [None]
  - PAIN IN EXTREMITY [None]
  - PALPITATIONS [None]
  - RADICULITIS LUMBOSACRAL [None]
  - SPINAL COLUMN STENOSIS [None]
  - STRESS [None]
  - TENDONITIS [None]
  - TRICUSPID VALVE INCOMPETENCE [None]
  - TRIGGER FINGER [None]
